FAERS Safety Report 14358131 (Version 2)
Quarter: 2018Q1

REPORT INFORMATION
  Report Type: Report from Study
  Country: US (occurrence: US)
  Receive Date: 20180105
  Receipt Date: 20180123
  Transmission Date: 20180509
  Serious: No
  Sender: FDA-Public Use
  Company Number: US-AMGEN-USASL2017190667

PATIENT
  Age: 59 Year
  Sex: Female

DRUGS (1)
  1. REPATHA [Suspect]
     Active Substance: EVOLOCUMAB
     Indication: HYPERCHOLESTEROLAEMIA
     Dosage: 140 MG, Q2WK
     Route: 065

REACTIONS (7)
  - Skin discolouration [Unknown]
  - Restless legs syndrome [Unknown]
  - Blood glucose decreased [Unknown]
  - Nasopharyngitis [Unknown]
  - Laceration [Unknown]
  - Vein disorder [Unknown]
  - Peripheral swelling [Unknown]
